FAERS Safety Report 4829812-7 (Version None)
Quarter: 2005Q4

REPORT INFORMATION
  Report Type: 
  Country: None (occurrence: None)
  Receive Date: 20051115
  Receipt Date: 20051115
  Transmission Date: 20060501
  Serious: No
  Sender: FDA-Public Use
  Company Number: None

PATIENT
  Sex: Male
  Weight: 89.1318 kg

DRUGS (6)
  1. LOSARTAN POTASSIUM [Suspect]
     Indication: HYPERTENSION
     Dosage: 50 MG ONCE DAILY PO
     Route: 048
     Dates: start: 20050620, end: 20050824
  2. RANITIDINE [Concomitant]
  3. QUETIAPINE FUMARATE [Concomitant]
  4. ASPIRIN [Concomitant]
  5. VICODIN [Concomitant]
  6. PRAZOSIN [Concomitant]

REACTIONS (2)
  - CONSTIPATION [None]
  - COUGH [None]
